FAERS Safety Report 9776410 (Version 1)
Quarter: 2013Q4

REPORT INFORMATION
  Report Type: Spontaneous
  Country: US (occurrence: US)
  Receive Date: 20131220
  Receipt Date: 20131220
  Transmission Date: 20140711
  Serious: No
  Sender: FDA-Public Use
  Company Number: US-BIOGENIDEC-2013BI116712

PATIENT
  Age: 47 Year
  Sex: Female

DRUGS (9)
  1. TECFIDERA [Suspect]
     Indication: MULTIPLE SCLEROSIS
     Route: 048
     Dates: start: 20131118, end: 20131124
  2. TECFIDERA [Suspect]
     Indication: MULTIPLE SCLEROSIS
     Route: 048
     Dates: start: 20131125
  3. LEVOTHYROXINE [Concomitant]
  4. ARMOR THYROID [Concomitant]
  5. LYRICA [Concomitant]
  6. NEXIUM [Concomitant]
  7. PROGESTERONE [Concomitant]
  8. ZANAFLEX [Concomitant]
  9. ZOLOFT [Concomitant]

REACTIONS (8)
  - Constipation [Not Recovered/Not Resolved]
  - Swelling [Not Recovered/Not Resolved]
  - Pain [Not Recovered/Not Resolved]
  - Balance disorder [Not Recovered/Not Resolved]
  - Abdominal pain [Not Recovered/Not Resolved]
  - Nausea [Recovered/Resolved]
  - Retching [Recovered/Resolved]
  - Rash papular [Not Recovered/Not Resolved]
